FAERS Safety Report 8760025 (Version 1)
Quarter: 2012Q4

REPORT INFORMATION
  Report Type: 
  Country: BR (occurrence: BR)
  Receive Date: 20120829
  Receipt Date: 20120829
  Transmission Date: 20130627
  Serious: Yes (Other)
  Sender: FDA-Public Use
  Company Number: PHHY2012BR071559

PATIENT
  Sex: Female

DRUGS (9)
  1. BUDESONIDE, FORMOTEROL FUMARATE [Suspect]
     Dosage: UNK UKN, UNK
  2. INDACATEROL [Concomitant]
     Dosage: 150 mg, UNK
  3. INDACATEROL [Concomitant]
     Dosage: 300 mg, UNK
  4. VACCINES [Concomitant]
     Dosage: UNK UKN, UNK
  5. FLUTICASONE W/SALMETEROL [Concomitant]
     Dosage: UNK UKN, UNK
  6. TIOTROPIUM [Concomitant]
     Dosage: UNK UKN, UNK
  7. TIOTROPIUM [Concomitant]
     Dosage: 18 ug, UNK
  8. TIOTROPIUM [Concomitant]
     Dosage: 5 ug, UNK
  9. ALPHA-1-ANTITRYPSIN [Concomitant]

REACTIONS (7)
  - Dengue fever [Unknown]
  - Herpes zoster [Unknown]
  - Chronic obstructive pulmonary disease [Unknown]
  - Dyspnoea [Recovering/Resolving]
  - Forced expiratory volume decreased [Recovering/Resolving]
  - Condition aggravated [Recovering/Resolving]
  - Fatigue [Unknown]
